FAERS Safety Report 24278840 (Version 1)
Quarter: 2024Q3

REPORT INFORMATION
  Report Type: Spontaneous
  Country: US (occurrence: None)
  Receive Date: 20240831
  Receipt Date: 20240831
  Transmission Date: 20241017
  Serious: Yes (Other)
  Sender: Public
  Company Number: None

PATIENT
  Age: 55 Year
  Sex: Female
  Weight: 66.15 kg

DRUGS (1)
  1. BUPRENORPHINE [Suspect]
     Active Substance: BUPRENORPHINE
     Indication: Pain
     Dates: start: 20230908

REACTIONS (4)
  - Dental caries [None]
  - Tooth fracture [None]
  - Tooth extraction [None]
  - Adverse drug reaction [None]

NARRATIVE: CASE EVENT DATE: 20240108
